FAERS Safety Report 7285220-3 (Version None)
Quarter: 2011Q1

REPORT INFORMATION
  Report Type: 
  Country: None (occurrence: None)
  Receive Date: 20110210
  Receipt Date: 20110208
  Transmission Date: 20110831
  Serious: Yes (Other)
  Sender: FDA-Public Use
  Company Number: US-PFIZER INC-2011028457

PATIENT
  Sex: Female
  Weight: 77.098 kg

DRUGS (10)
  1. NIFEDIPINE [Concomitant]
     Indication: HYPERTENSION
     Dosage: UNK
     Route: 048
  2. ROBITUSSIN DM [Suspect]
     Indication: COUGH
     Dosage: UNK
     Route: 048
     Dates: start: 20110204, end: 20110206
  3. METOPROLOL [Concomitant]
     Indication: HYPERTENSION
     Dosage: UNK
     Route: 048
  4. ROBITUSSIN DM [Suspect]
     Indication: HYPERTENSION
  5. LOVASTATIN [Concomitant]
     Indication: BLOOD CHOLESTEROL INCREASED
     Dosage: UNK
     Route: 048
  6. HYDROCHLOROTHIAZIDE [Concomitant]
     Indication: HYPERTENSION
     Dosage: UNK
     Route: 048
  7. OMEPRAZOLE [Concomitant]
     Indication: GASTROOESOPHAGEAL REFLUX DISEASE
     Dosage: UNK
     Route: 048
  8. ROBITUSSIN COUGH AND CHEST CONGESTION DM MAX [Suspect]
     Indication: COUGH
     Dosage: UNK
     Route: 048
     Dates: start: 20110207
  9. ROBITUSSIN COUGH AND CHEST CONGESTION DM MAX [Suspect]
     Indication: HYPERTENSION
  10. BENICAR [Concomitant]
     Indication: HYPERTENSION
     Dosage: UNK
     Route: 048

REACTIONS (6)
  - CHOKING [None]
  - NASAL OEDEMA [None]
  - MALAISE [None]
  - DYSPHONIA [None]
  - DRUG INEFFECTIVE [None]
  - COUGH [None]
